FAERS Safety Report 9664589 (Version 1)
Quarter: 2013Q4

REPORT INFORMATION
  Report Type: Spontaneous
  Country: US (occurrence: None)
  Receive Date: 20131031
  Receipt Date: 20131031
  Transmission Date: 20140711
  Serious: Yes (Death)
  Sender: FDA-Public Use
  Company Number: None

PATIENT
  Age: 69 Year
  Sex: Male

DRUGS (1)
  1. XTANDI 40MG ASTELLAS [Suspect]
     Indication: PROSTATE CANCER
     Dosage: ORAL  PRT  DAY
     Route: 048
     Dates: start: 20130103, end: 20130827

REACTIONS (1)
  - Disease progression [None]
